FAERS Safety Report 5162497-1 (Version None)
Quarter: 2006Q4

REPORT INFORMATION
  Report Type: 
  Country: None (occurrence: None)
  Receive Date: 20061128
  Receipt Date: 20061128
  Transmission Date: 20070319
  Serious: Yes (Death)
  Sender: FDA-Public Use
  Company Number: None

PATIENT
  Age: 23 Year
  Sex: Female
  Weight: 97 kg

DRUGS (6)
  1. COMBIVIR [Suspect]
     Indication: HIV INFECTION
     Dosage: 300 MG/150 MG BID PO
     Route: 048
  2. VITAMIN B COMPLEX CAP [Concomitant]
  3. PANADINE [Concomitant]
  4. BACTRIM [Concomitant]
  5. INJECTIONAL HORMONE CONTRACEPTIVE [Concomitant]
  6. NEVIRAPINE [Concomitant]

REACTIONS (4)
  - ANGIOPATHY [None]
  - CEREBROVASCULAR ACCIDENT [None]
  - DISEASE PROGRESSION [None]
  - HIV INFECTION [None]
